FAERS Safety Report 6923081-X (Version None)
Quarter: 2010Q3

REPORT INFORMATION
  Report Type: 
  Country: None (occurrence: None)
  Receive Date: 20100813
  Receipt Date: 20100802
  Transmission Date: 20110219
  Serious: Yes (Hospitalization, Other)
  Sender: FDA-Public Use
  Company Number: US-ELI_LILLY_AND_COMPANY-US201008001853

PATIENT
  Sex: Female

DRUGS (12)
  1. FORTEO [Suspect]
     Indication: OSTEOPOROSIS
     Dosage: UNK, UNK
     Dates: start: 20100201
  2. LOTREL [Concomitant]
     Dosage: UNK, UNK
  3. METOPROLOL TARTRATE [Concomitant]
     Dosage: UNK, UNK
  4. NEXIUM [Concomitant]
     Dosage: UNK, UNK
  5. SYNTHROID [Concomitant]
     Dosage: UNK, UNK
  6. KLONOPIN [Concomitant]
     Dosage: UNK, UNK
  7. PLAVIX [Concomitant]
     Dosage: UNK, UNK
  8. ASPIRIN [Concomitant]
     Dosage: 81 MG, UNK
  9. FISH OIL [Concomitant]
     Dosage: UNK, UNK
  10. MSM [Concomitant]
     Dosage: UNK, UNK
  11. VITAMINS-MINERALS THERAPEUTIC [Concomitant]
     Dosage: UNK, UNK
  12. PRAVACHOL [Concomitant]

REACTIONS (3)
  - CHEST PAIN [None]
  - CHOLECYSTECTOMY [None]
  - HEPATIC ENZYME INCREASED [None]
